FAERS Safety Report 9723653 (Version 2)
Quarter: 2014Q1

REPORT INFORMATION
  Report Type: Spontaneous
  Country: AR (occurrence: AR)
  Receive Date: 20131202
  Receipt Date: 20140220
  Transmission Date: 20141002
  Serious: Yes (Hospitalization)
  Sender: FDA-Public Use
  Company Number: AR-PFIZER INC-2013339134

PATIENT
  Age: 6 Year
  Sex: Male

DRUGS (9)
  1. RAPAMUNE [Suspect]
     Indication: PROPHYLAXIS AGAINST TRANSPLANT REJECTION
     Dosage: 1 MG, 1X/DAY
     Dates: start: 20130628
  2. MYCOPHENOLATE MOFETIL [Concomitant]
     Dosage: 500 MG, 2X/DAY
  3. LOPERAMIDE [Concomitant]
     Dosage: 3 MG, EVERY 6HS.
  4. OMEPRAZOLE [Concomitant]
     Dosage: 20 MG, 1X/DAY
  5. PAPAVERINE [Concomitant]
     Dosage: 3 DROPS, 2X/DAY
  6. BACTRIN [Concomitant]
     Dosage: 15 MG, 3 TIMES A WEEK.
  7. CALCIUM CITRATE [Concomitant]
     Dosage: 12 DROPS, 1X/DAY
  8. SUPRADYN [Concomitant]
     Dosage: 12 DROPS 1X/DAY
  9. DELTISONA B [Concomitant]
     Dosage: 15 DROPS, 1X/DAY

REACTIONS (3)
  - Respiratory tract infection [Not Recovered/Not Resolved]
  - Intestinal prolapse [Not Recovered/Not Resolved]
  - Off label use [Recovered/Resolved]
